FAERS Safety Report 11603350 (Version 1)
Quarter: 2015Q4

REPORT INFORMATION
  Report Type: Spontaneous
  Country: US (occurrence: US)
  Receive Date: 20151007
  Receipt Date: 20151007
  Transmission Date: 20160304
  Serious: No
  Sender: FDA-Public Use
  Company Number: US-ASTRAZENECA-2015SE83925

PATIENT
  Age: 971 Month
  Sex: Male
  Weight: 113.4 kg

DRUGS (2)
  1. SYMBICORT [Suspect]
     Active Substance: BUDESONIDE\FORMOTEROL FUMARATE DIHYDRATE
     Dosage: 160 / 4.5 MCG, TWO PUFFS, TWO TIMES A DAY
     Route: 055
     Dates: start: 2013, end: 201508
  2. BRIO [Concomitant]
     Dosage: UNKNOWN
     Route: 065
     Dates: start: 201508

REACTIONS (2)
  - Headache [Recovered/Resolved]
  - Off label use [Unknown]

NARRATIVE: CASE EVENT DATE: 201508
